FAERS Safety Report 7583605-9 (Version None)
Quarter: 2011Q2

REPORT INFORMATION
  Report Type: 
  Country: None (occurrence: None)
  Receive Date: 20110630
  Receipt Date: 20110615
  Transmission Date: 20111010
  Serious: Yes (Death)
  Sender: FDA-Public Use
  Company Number: A0933270A

PATIENT
  Sex: Male

DRUGS (1)
  1. SERETIDE [Suspect]
     Dosage: 2PUFF PER DAY
     Route: 055
     Dates: start: 20101001, end: 20110301

REACTIONS (1)
  - RESPIRATORY ARREST [None]
